FAERS Safety Report 8529586-2 (Version None)
Quarter: 2012Q3

REPORT INFORMATION
  Report Type: 
  Country: None (occurrence: None)
  Receive Date: 20120710
  Receipt Date: 20120626
  Transmission Date: 20120928
  Serious: Yes (Other)
  Sender: FDA-Public Use
  Company Number: 2012SA045979

PATIENT
  Sex: Male

DRUGS (1)
  1. MENTHOL [Suspect]
     Dosage: TOPICAL
     Route: 061
     Dates: start: 20120101, end: 20120101

REACTIONS (1)
  - PAIN [None]
